FAERS Safety Report 8698462 (Version 2)
Quarter: 2012Q4

REPORT INFORMATION
  Report Type: Spontaneous
  Country: TR (occurrence: None)
  Receive Date: 20120717
  Receipt Date: 20120917
  Transmission Date: 20130627
  Serious: Yes (Hospitalization)
  Sender: FDA-Public Use
  Company Number: 1343530

PATIENT
  Age: 13 Year
  Sex: Female

DRUGS (5)
  1. METHOTREXATE [Suspect]
     Indication: NON-HODGKIN^S LYMPHOMA
     Dosage: NOT REPORTED (UNKNOWN)
  2. CYTARABINE [Concomitant]
  3. ETOPOSIDE [Concomitant]
  4. FOLINIC ACID [Concomitant]
  5. SODIUM BICARBONATE [Concomitant]

REACTIONS (13)
  - Intra-abdominal haemorrhage [None]
  - Pleural haemorrhage [None]
  - Off label use [None]
  - Shock haemorrhagic [None]
  - Hyperaemia [None]
  - Renal failure acute [None]
  - Mucosal inflammation [None]
  - Tumour lysis syndrome [None]
  - Pruritus [None]
  - Febrile neutropenia [None]
  - Fungal oesophagitis [None]
  - Platelet count decreased [None]
  - Haemoglobin decreased [None]
